FAERS Safety Report 9586520 (Version 1)
Quarter: 2013Q4

REPORT INFORMATION
  Report Type: Spontaneous
  Country: FR (occurrence: FR)
  Receive Date: 20131003
  Receipt Date: 20131003
  Transmission Date: 20140711
  Serious: Yes (Hospitalization)
  Sender: FDA-Public Use
  Company Number: FR-JNJFOC-20130914751

PATIENT
  Age: 51 Year
  Sex: Female
  Weight: 41 kg

DRUGS (11)
  1. RISPERDALORO [Suspect]
     Indication: MAJOR DEPRESSION
     Route: 048
     Dates: end: 20110927
  2. RISPERDALORO [Suspect]
     Indication: MAJOR DEPRESSION
     Route: 048
     Dates: start: 20110607
  3. ABILIFY [Suspect]
     Indication: PRODUCT USED FOR UNKNOWN INDICATION
     Dosage: 5 TO 10 MG PER DAY
     Route: 048
     Dates: start: 20111024, end: 20120123
  4. XEROQUEL [Suspect]
     Indication: PRODUCT USED FOR UNKNOWN INDICATION
     Dosage: 300 TO 600 MG PER DAY
     Route: 065
     Dates: start: 20120410, end: 20120425
  5. CLOZAPINE [Suspect]
     Indication: PRODUCT USED FOR UNKNOWN INDICATION
     Dosage: 25 TO 100 MG PER DAY
     Route: 048
     Dates: start: 20120419, end: 20120804
  6. XENAZINE [Suspect]
     Indication: PRODUCT USED FOR UNKNOWN INDICATION
     Dosage: 25 TO 50 MG PER DAY
     Route: 048
     Dates: start: 201208, end: 20121208
  7. LARGACTIL [Suspect]
     Indication: PRODUCT USED FOR UNKNOWN INDICATION
     Dosage: 150 TO 225 MG PER DAY
     Route: 048
     Dates: start: 20130103, end: 20130111
  8. STILNOX [Concomitant]
     Indication: PRODUCT USED FOR UNKNOWN INDICATION
     Route: 065
  9. TEMESTA [Concomitant]
     Indication: PRODUCT USED FOR UNKNOWN INDICATION
     Route: 065
  10. ANAFRANIL [Concomitant]
     Indication: PRODUCT USED FOR UNKNOWN INDICATION
     Route: 065
  11. PARACETAMOL [Concomitant]
     Indication: PRODUCT USED FOR UNKNOWN INDICATION
     Route: 065

REACTIONS (7)
  - Suicide attempt [Unknown]
  - Extrapyramidal disorder [Not Recovered/Not Resolved]
  - Tardive dyskinesia [Not Recovered/Not Resolved]
  - Off label use [Recovered/Resolved]
  - Drug prescribing error [Recovered/Resolved]
  - Delirium [Unknown]
  - Akathisia [Not Recovered/Not Resolved]
